FAERS Safety Report 16883190 (Version 1)
Quarter: 2019Q4

REPORT INFORMATION
  Report Type: Spontaneous
  Country: US (occurrence: US)
  Receive Date: 20191004
  Receipt Date: 20191004
  Transmission Date: 20200122
  Serious: No
  Sender: FDA-Public Use
  Company Number: US-SA-2019SA270906

PATIENT
  Age: 53 Year
  Sex: Female

DRUGS (1)
  1. ALLEGRA ALLERGY [Suspect]
     Active Substance: FEXOFENADINE HYDROCHLORIDE
     Indication: HYPERSENSITIVITY
     Dosage: UNK UNK, UNK
     Route: 065
     Dates: start: 20190924

REACTIONS (6)
  - Disorientation [Unknown]
  - Feeling drunk [Unknown]
  - Somnolence [Unknown]
  - Feeling abnormal [Unknown]
  - Dysarthria [Unknown]
  - Drug ineffective [Unknown]
